FAERS Safety Report 14366980 (Version 1)
Quarter: 2018Q1

REPORT INFORMATION
  Report Type: Spontaneous
  Country: US (occurrence: US)
  Receive Date: 20180109
  Receipt Date: 20180109
  Transmission Date: 20180509
  Serious: Yes (Hospitalization)
  Sender: FDA-Public Use
  Company Number: US-GLAXOSMITHKLINE-US2018000336

PATIENT
  Age: 75 Year
  Sex: Female

DRUGS (7)
  1. BREO ELLIPTA [Suspect]
     Active Substance: FLUTICASONE FUROATE\VILANTEROL TRIFENATATE
     Indication: CHRONIC OBSTRUCTIVE PULMONARY DISEASE
     Dosage: 1 PUFF(S), 1D
     Route: 055
     Dates: start: 201706
  2. BREO ELLIPTA [Suspect]
     Active Substance: FLUTICASONE FUROATE\VILANTEROL TRIFENATATE
     Indication: ASTHMA
  3. ALBUTEROL. [Concomitant]
     Active Substance: ALBUTEROL
  4. OXYGEN. [Concomitant]
     Active Substance: OXYGEN
  5. PNEUMONIA SHOT [Concomitant]
     Active Substance: PNEUMOCOCCAL VACCINE POLYVALENT
     Dosage: UNK
  6. SYMBICORT [Concomitant]
     Active Substance: BUDESONIDE\FORMOTEROL FUMARATE DIHYDRATE
  7. VENTOLIN [Concomitant]
     Active Substance: ALBUTEROL SULFATE

REACTIONS (6)
  - Dyspnoea [Unknown]
  - Productive cough [Unknown]
  - Product use issue [Unknown]
  - Inflammation [Unknown]
  - Wrong technique in device usage process [Not Recovered/Not Resolved]
  - Drug dose omission [Unknown]

NARRATIVE: CASE EVENT DATE: 201708
